FAERS Safety Report 7086132-0 (Version None)
Quarter: 2010Q4

REPORT INFORMATION
  Report Type: 
  Country: None (occurrence: None)
  Receive Date: 20101105
  Receipt Date: 20101025
  Transmission Date: 20110411
  Serious: Yes (Hospitalization)
  Sender: FDA-Public Use
  Company Number: B0682842A

PATIENT
  Age: 20 Year
  Sex: Female

DRUGS (2)
  1. LAMOTRIGINE [Suspect]
     Indication: EPILEPSY
     Route: 065
  2. VALPROIC ACID [Suspect]
     Indication: EPILEPSY
     Route: 065

REACTIONS (13)
  - DERMATITIS [None]
  - DRUG RASH WITH EOSINOPHILIA AND SYSTEMIC SYMPTOMS [None]
  - EOSINOPHILIA [None]
  - HEPATIC ENZYME INCREASED [None]
  - LEUKOCYTOSIS [None]
  - LICHENIFICATION [None]
  - PAPULE [None]
  - PYREXIA [None]
  - RASH [None]
  - RASH PRURITIC [None]
  - SECONDARY ADRENOCORTICAL INSUFFICIENCY [None]
  - SKIN LESION [None]
  - TRANSAMINASES INCREASED [None]
